FAERS Safety Report 13003110 (Version 1)
Quarter: 2016Q4

REPORT INFORMATION
  Report Type: Spontaneous
  Country: US (occurrence: US)
  Receive Date: 20161206
  Receipt Date: 20161206
  Transmission Date: 20170207
  Serious: Yes (Other)
  Sender: FDA-Public Use
  Company Number: US-NOVOPROD-521093

PATIENT
  Sex: Male

DRUGS (1)
  1. NOVOLOG [Suspect]
     Active Substance: INSULIN ASPART
     Indication: PRODUCT USED FOR UNKNOWN INDICATION
     Dosage: UNKNOWN
     Route: 058
     Dates: end: 20161128

REACTIONS (3)
  - Product quality issue [Unknown]
  - Dehydration [Unknown]
  - Blood glucose increased [Unknown]

NARRATIVE: CASE EVENT DATE: 2016
